FAERS Safety Report 5675357-4 (Version None)
Quarter: 2008Q1

REPORT INFORMATION
  Report Type: 
  Country: None (occurrence: None)
  Receive Date: 20080320
  Receipt Date: 20080318
  Transmission Date: 20080703
  Serious: Yes (Other)
  Sender: FDA-Public Use
  Company Number: US-BOEHRINGER INGELHEIM GMBH, GERMANY-2008-DE-01688GD

PATIENT
  Age: 69 Year
  Sex: Male

DRUGS (4)
  1. SERTRALINE [Suspect]
     Indication: MAJOR DEPRESSION
     Dosage: 25 MG/DAY TITRATED TO 150 MG/DAY
  2. TRAZODONE HCL [Suspect]
     Indication: INSOMNIA
  3. RISPERIDONE [Suspect]
     Indication: MAJOR DEPRESSION
     Dosage: 0,5 MG BID TITRATED TO 3 MG/DAY
  4. METOPROLOL TARTRATE [Concomitant]

REACTIONS (2)
  - DRUG INTERACTION [None]
  - SEROTONIN SYNDROME [None]
